FAERS Safety Report 23777103 (Version 1)
Quarter: 2024Q2

REPORT INFORMATION
  Report Type: Report from Study
  Country: CA (occurrence: CA)
  Receive Date: 20240424
  Receipt Date: 20240424
  Transmission Date: 20240716
  Serious: Yes (Other)
  Sender: FDA-Public Use
  Company Number: CA-JAMP PHARMA CORPORATION-2023-JAM-CA-01157

PATIENT
  Age: 42 Year
  Sex: Female

DRUGS (2)
  1. SIMLANDI [Suspect]
     Active Substance: ADALIMUMAB-RYVK
     Indication: Uveitis
     Dosage: 40 MG, EVERY 2 WEEKS
     Route: 065
  2. SIMLANDI [Suspect]
     Active Substance: ADALIMUMAB-RYVK
     Indication: Uveitis
     Dosage: UNK, BIWEEKLY
     Route: 065
     Dates: start: 20230706

REACTIONS (3)
  - Uveitis [Not Recovered/Not Resolved]
  - Inflammation [Not Recovered/Not Resolved]
  - Product dose omission issue [Unknown]
